FAERS Safety Report 5288122-7 (Version None)
Quarter: 2007Q2

REPORT INFORMATION
  Report Type: 
  Country: None (occurrence: None)
  Receive Date: 20070402
  Receipt Date: 20070402
  Transmission Date: 20071010
  Serious: No
  Sender: FDA-Public Use
  Company Number: None

PATIENT
  Sex: Female
  Weight: 71.2147 kg

DRUGS (6)
  1. XELODA [Suspect]
     Indication: COLON CANCER
     Dosage: 2000MG BID PO
     Route: 048
     Dates: start: 20070315, end: 20070327
  2. LIPITOR [Concomitant]
  3. LEVOXYL [Concomitant]
  4. ATIVAN [Concomitant]
  5. ZOFRAN [Concomitant]
  6. PROCHLORPERAZINE [Concomitant]

REACTIONS (4)
  - ANOREXIA [None]
  - CONDITION AGGRAVATED [None]
  - NAUSEA [None]
  - PARKINSON'S DISEASE [None]
